FAERS Safety Report 7190354-8 (Version None)
Quarter: 2010Q4

REPORT INFORMATION
  Report Type: 
  Country: None (occurrence: None)
  Receive Date: 20101221
  Receipt Date: 20101221
  Transmission Date: 20110411
  Serious: No
  Sender: FDA-Public Use
  Company Number: None

PATIENT
  Sex: Female
  Weight: 58.9676 kg

DRUGS (1)
  1. PROPOXYPHENE HCL AND ACETAMINOPHEN [Suspect]
     Indication: SURGERY
     Dosage: 1 4 TO 6 HRS MOUTH
     Route: 048
     Dates: start: 20101118, end: 20101122

REACTIONS (6)
  - DIZZINESS [None]
  - MALAISE [None]
  - PALPITATIONS [None]
  - PRODUCT QUALITY ISSUE [None]
  - RASH [None]
  - VOMITING [None]
